FAERS Safety Report 24625454 (Version 1)
Quarter: 2024Q4

REPORT INFORMATION
  Report Type: Spontaneous
  Country: US (occurrence: None)
  Receive Date: 20241115
  Receipt Date: 20241115
  Transmission Date: 20250115
  Serious: Yes (Life-Threatening, Hospitalization)
  Sender: Public
  Company Number: None

PATIENT
  Age: 73 Year
  Sex: Female
  Weight: 91 kg

DRUGS (1)
  1. HYDROCHLOROTHIAZIDE\LOSARTAN POTASSIUM [Suspect]
     Active Substance: HYDROCHLOROTHIAZIDE\LOSARTAN POTASSIUM
     Indication: Hypertension
     Dosage: 12.5 MG : AM ORAL?
     Route: 048

REACTIONS (6)
  - Hypokalaemia [None]
  - Hypomagnesaemia [None]
  - Hyponatraemia [None]
  - Metabolic acidosis [None]
  - Acute respiratory failure [None]
  - Therapy change [None]

NARRATIVE: CASE EVENT DATE: 20240809
